FAERS Safety Report 17407744 (Version 2)
Quarter: 2022Q1

REPORT INFORMATION
  Report Type: Spontaneous
  Country: CH (occurrence: CH)
  Receive Date: 20200212
  Receipt Date: 20220201
  Transmission Date: 20220423
  Serious: Yes (Hospitalization)
  Sender: FDA-Public Use
  Company Number: CH-SM-2020-10553

PATIENT
  Age: 40 Year
  Sex: Male

DRUGS (6)
  1. SULFAMETHOXAZOLE\TRIMETHOPRIM [Suspect]
     Active Substance: SULFAMETHOXAZOLE\TRIMETHOPRIM
     Indication: Antifungal prophylaxis
     Dosage: TIME INTERVAL:1-0-0-0 (2.33 D)?1 DOSAGE FORM: 800 MG SULFAMETHOXAZOLE + 160 MG TRIMETHOPRIM
     Route: 048
     Dates: start: 20190501, end: 20190611
  2. SULFAMETHOXAZOLE\TRIMETHOPRIM [Suspect]
     Active Substance: SULFAMETHOXAZOLE\TRIMETHOPRIM
     Dosage: TIME INTERVAL: 1-0-0-0 (2.33 D)?1 DOSAGE FORM: 800 MG SULFAMETHOXAZOLE + 160 MG TRIMETHOPRIM
     Route: 048
     Dates: start: 20191121, end: 20191205
  3. DESCOVY [Concomitant]
     Active Substance: EMTRICITABINE\TENOFOVIR ALAFENAMIDE FUMARATE
  4. NORVIR [Concomitant]
     Active Substance: RITONAVIR
  5. PREZISTA [Concomitant]
     Active Substance: DARUNAVIR ETHANOLATE
  6. PANTOZOL [Concomitant]
     Active Substance: PANTOPRAZOLE SODIUM

REACTIONS (2)
  - Cholestatic liver injury [Recovered/Resolved]
  - Cholestatic liver injury [Recovering/Resolving]

NARRATIVE: CASE EVENT DATE: 20190610
